FAERS Safety Report 8715108 (Version 2)
Quarter: 2012Q4

REPORT INFORMATION
  Report Type: 
  Country: US (occurrence: US)
  Receive Date: 20120809
  Receipt Date: 20120914
  Transmission Date: 20130627
  Serious: No
  Sender: FDA-Public Use
  Company Number: US-ASTRAZENECA-2012SE54330

PATIENT
  Age: 62 Year
  Sex: Male
  Weight: 86.2 kg

DRUGS (3)
  1. NEXIUM [Suspect]
     Indication: INFLAMMATION
     Route: 048
  2. BABY ASPIRIN [Concomitant]
  3. IMODIUM [Concomitant]

REACTIONS (2)
  - Drug ineffective for unapproved indication [Unknown]
  - Off label use [Unknown]
